FAERS Safety Report 9813101 (Version 1)
Quarter: 2014Q1

REPORT INFORMATION
  Report Type: Spontaneous
  Country: US (occurrence: None)
  Receive Date: 20140110
  Receipt Date: 20140110
  Transmission Date: 20141002
  Serious: Yes (Other)
  Sender: FDA-Public Use
  Company Number: None

PATIENT
  Age: 59 Year
  Sex: Female
  Weight: 86.64 kg

DRUGS (2)
  1. ZYRTEC [Suspect]
     Indication: HYPERSENSITIVITY
     Dates: start: 20130630, end: 20131231
  2. ZYRTEC [Suspect]
     Indication: ASTHMA
     Dates: start: 20130630, end: 20131231

REACTIONS (5)
  - Somnolence [None]
  - Pruritus [None]
  - Rash maculo-papular [None]
  - Rash [None]
  - Burning sensation [None]
